FAERS Safety Report 7025249 (Version 2)
Quarter: 2015Q1

REPORT INFORMATION
  Report Type: Report from Study
  Country: KR (occurrence: KR)
  Receive Date: 20090617
  Receipt Date: 20150101
  Transmission Date: 20150721
  Serious: Yes (Death, Life-Threatening, Hospitalization)
  Sender: FDA-Public Use
  Company Number: KR-ROCHE-541449

PATIENT
  Age: 61 Year
  Sex: Female
  Weight: 81 kg

DRUGS (3)
  1. CAPECITABINE. [Suspect]
     Active Substance: CAPECITABINE
     Indication: METASTATIC GASTRIC CANCER
     Dosage: GIVEN ON DAYS ONE TO FOURTEEN EVERY THREE WEEKS.
     Route: 048
     Dates: start: 20071226, end: 20080109
  2. CISPLATIN. [Suspect]
     Active Substance: CISPLATIN
     Indication: METASTATIC GASTRIC CANCER
     Dosage: DOSAGE FORM REPORTED AS INFUSION.?GIVEN ON DAY ONE EVERY THREE WEEKS FOR A TOTAL OF SIX CYCLES.
     Route: 042
     Dates: start: 20071226, end: 20071226
  3. PLACEBO [Suspect]
     Active Substance: UNSPECIFIED INGREDIENT
     Indication: GASTRIC CANCER
     Dosage: AS OF CYCLE 1 GIVEN ON DAY ONE EVERY THREE WEEKS.?DOSAGE FORM REPORTED AS INFUSION.
     Route: 042
     Dates: start: 20071226, end: 20071226

REACTIONS (2)
  - Neutropenic infection [Fatal]
  - Diarrhoea [Not Recovered/Not Resolved]

NARRATIVE: CASE EVENT DATE: 20080110
